FAERS Safety Report 5022517-1 (Version None)
Quarter: 2006Q2

REPORT INFORMATION
  Report Type: 
  Country: None (occurrence: None)
  Receive Date: 20060609
  Receipt Date: 20060529
  Transmission Date: 20061013
  Serious: Yes (Other)
  Sender: FDA-Public Use
  Company Number: GB-NOVOPROD-253694

PATIENT

DRUGS (2)
  1. NOVONORM [Suspect]
     Indication: DIABETES MELLITUS NON-INSULIN-DEPENDENT
  2. XIPAMIDE [Suspect]

REACTIONS (2)
  - DRUG INTERACTION [None]
  - HYPOKALAEMIA [None]
